FAERS Safety Report 7954970 (Version 2)
Quarter: 2013Q3

REPORT INFORMATION
  Report Type: Spontaneous
  Country: DE (occurrence: None)
  Receive Date: 20110503
  Receipt Date: 20130708
  Transmission Date: 20140515
  Serious: Yes (Death, Hospitalization)
  Sender: FDA-Public Use
  Company Number: DE-008086

PATIENT
  Age: 72 Year
  Sex: Male
  Weight: 76 kg

DRUGS (3)
  1. CHLORAMBUCIL [Suspect]
     Indication: CHRONIC LYMPHOCYTIC LEUKAEMIA
     Dosage: ORAL
     Route: 048
     Dates: start: 20091130
  2. OFATUMUMAB [Suspect]
     Indication: IMMUNOGLOBULINS NORMAL
     Dosage: INJECTION, INTRAVENOUS
     Route: 042
     Dates: start: 20091130, end: 20100329
  3. SANDOGLOBULIN [Concomitant]

REACTIONS (3)
  - Dyspnoea [None]
  - Sepsis [None]
  - Embolism [None]
